FAERS Safety Report 10991747 (Version 1)
Quarter: 2015Q2

REPORT INFORMATION
  Report Type: Report from Study
  Country: HK (occurrence: HK)
  Receive Date: 20150406
  Receipt Date: 20150406
  Transmission Date: 20150821
  Serious: Yes (Death, Other)
  Sender: FDA-Public Use
  Company Number: HK-BAXTER-2015BAX017628

PATIENT
  Age: 42 Year
  Sex: Female

DRUGS (14)
  1. METHOTREXATE [Suspect]
     Active Substance: METHOTREXATE
     Indication: METASTATIC CHORIOCARCINOMA
     Dosage: DAY 3
     Route: 042
  2. ENDOXAN FOR INJ IG [Suspect]
     Active Substance: CYCLOPHOSPHAMIDE
     Indication: METASTATIC CHORIOCARCINOMA
     Dosage: DAY 5
     Route: 042
  3. ACTINOMYCIN D [Suspect]
     Active Substance: DACTINOMYCIN
     Indication: METASTATIC CHORIOCARCINOMA
     Dosage: DAY 5, 6 AND 7(MAXIMUM OF  0.5MG)
     Route: 042
  4. VINCRISTINE [Suspect]
     Active Substance: VINCRISTINE
     Indication: METASTASES TO LIVER
  5. HYDROXYUREA. [Suspect]
     Active Substance: HYDROXYUREA
     Indication: METASTASES TO LIVER
  6. ACTINOMYCIN D [Suspect]
     Active Substance: DACTINOMYCIN
     Indication: METASTASES TO LIVER
  7. VINCRISTINE [Suspect]
     Active Substance: VINCRISTINE
     Indication: METASTATIC CHORIOCARCINOMA
     Dosage: DAY 3 (MAXIMUM OF 2 MG)
     Route: 042
  8. METHOTREXATE [Suspect]
     Active Substance: METHOTREXATE
     Indication: DISEASE RECURRENCE
     Route: 065
  9. ETOPOSIDE. [Suspect]
     Active Substance: ETOPOSIDE
     Indication: DISEASE RECURRENCE
     Route: 065
  10. HYDROXYUREA. [Suspect]
     Active Substance: HYDROXYUREA
     Indication: METASTATIC CHORIOCARCINOMA
     Dosage: DAY 1 AND DAY 2
     Route: 048
  11. BLEOMYCIN [Suspect]
     Active Substance: BLEOMYCIN SULFATE
     Indication: DISEASE RECURRENCE
     Route: 065
  12. ENDOXAN FOR INJ IG [Suspect]
     Active Substance: CYCLOPHOSPHAMIDE
     Indication: OFF LABEL USE
  13. ENDOXAN FOR INJ IG [Suspect]
     Active Substance: CYCLOPHOSPHAMIDE
     Indication: METASTASES TO LIVER
  14. METHOTREXATE [Suspect]
     Active Substance: METHOTREXATE
     Indication: METASTASES TO LIVER
     Dosage: DAY 3
     Route: 042

REACTIONS (3)
  - Colon cancer [Fatal]
  - Neoplasm malignant [Fatal]
  - Disease recurrence [Recovered/Resolved]
